FAERS Safety Report 21446675 (Version 1)
Quarter: 2022Q4

REPORT INFORMATION
  Report Type: Spontaneous
  Country: JP (occurrence: None)
  Receive Date: 20221012
  Receipt Date: 20221012
  Transmission Date: 20230113
  Serious: Yes (Hospitalization, Other)
  Sender: FDA-Public Use
  Company Number: JP-HQ-20220041

PATIENT
  Sex: Male

DRUGS (1)
  1. LINEZOLID [Suspect]
     Active Substance: LINEZOLID
     Indication: Device related infection

REACTIONS (3)
  - Neonatal hyperglycaemia [Recovered/Resolved]
  - Lactic acidosis [Recovered/Resolved]
  - Off label use [Unknown]
